FAERS Safety Report 7434933-9 (Version None)
Quarter: 2011Q2

REPORT INFORMATION
  Report Type: 
  Country: None (occurrence: None)
  Receive Date: 20110425
  Receipt Date: 20110419
  Transmission Date: 20111010
  Serious: Yes (Hospitalization, Other)
  Sender: FDA-Public Use
  Company Number: US-ALEXION-A201100078

PATIENT
  Sex: Female

DRUGS (11)
  1. LEXAPRO [Concomitant]
     Dosage: UNK
  2. IMDUR [Concomitant]
  3. SOLIRIS [Suspect]
     Indication: PAROXYSMAL NOCTURNAL HAEMOGLOBINURIA
     Dosage: UNK
     Route: 042
  4. VICODIN [Concomitant]
     Dosage: UNK
  5. AMIODARONE [Concomitant]
  6. NORVASC [Concomitant]
  7. LOPRESSOR [Concomitant]
     Dosage: UNK
  8. COUMADIN [Suspect]
  9. NITROSTAT [Concomitant]
     Dosage: UNK
  10. ASPIRIN [Concomitant]
     Dosage: UNK
  11. LISINOPRIL [Concomitant]

REACTIONS (9)
  - ATRIAL FIBRILLATION [None]
  - CARDIAC FAILURE CONGESTIVE [None]
  - CONDITION AGGRAVATED [None]
  - CHEST PAIN [None]
  - HEART RATE IRREGULAR [None]
  - HYPOKALAEMIA [None]
  - INTERNATIONAL NORMALISED RATIO DECREASED [None]
  - HYPOMAGNESAEMIA [None]
  - THROMBOCYTOPENIA [None]
